FAERS Safety Report 11713277 (Version 2)
Quarter: 2015Q4

REPORT INFORMATION
  Report Type: Spontaneous
  Country: JP (occurrence: JP)
  Receive Date: 20151109
  Receipt Date: 20151119
  Transmission Date: 20160304
  Serious: Yes (Death, Life-Threatening, Hospitalization)
  Sender: FDA-Public Use
  Company Number: JP-HOSPIRA-3064664

PATIENT
  Age: 43 Year
  Sex: Male
  Weight: 63 kg

DRUGS (24)
  1. CLOBETASOL PROPIONATE. [Concomitant]
     Active Substance: CLOBETASOL PROPIONATE
     Indication: VASCULITIS
     Dosage: PROPER DOSE
     Route: 061
     Dates: start: 20150806
  2. MAGNESIUM OXIDE. [Concomitant]
     Active Substance: MAGNESIUM OXIDE
     Indication: CONSTIPATION
     Route: 048
     Dates: start: 20150123
  3. PACLITAXEL. [Suspect]
     Active Substance: PACLITAXEL
     Indication: CHEMOTHERAPY
     Dates: start: 20150129, end: 20150402
  4. LACTEC D                           /00895301/ [Concomitant]
     Indication: DIARRHOEA
     Route: 042
     Dates: start: 20150730, end: 20150730
  5. LACTEC D                           /00895301/ [Concomitant]
     Indication: PRODUCT USED FOR UNKNOWN INDICATION
     Route: 042
     Dates: start: 20150731, end: 20150802
  6. ANHYDROUS CAFFEINE [Concomitant]
     Active Substance: CAFFEINE
     Indication: HEADACHE
     Route: 048
     Dates: start: 20150514
  7. OXYCODONE HYDROCHLORIDE. [Concomitant]
     Active Substance: OXYCODONE HYDROCHLORIDE
     Indication: CANCER PAIN
     Route: 048
     Dates: start: 20150727, end: 20150815
  8. ISOPROPYLANTIPYRINUM [Concomitant]
     Indication: PRODUCT USED FOR UNKNOWN INDICATION
  9. OXYCODONE HYDROCHLORIDE. [Concomitant]
     Active Substance: OXYCODONE HYDROCHLORIDE
     Indication: CANCER PAIN
     Route: 048
     Dates: start: 20150203, end: 20150726
  10. OXYCODONE HYDROCHLORIDE. [Concomitant]
     Active Substance: OXYCODONE HYDROCHLORIDE
     Indication: CANCER PAIN
     Route: 048
     Dates: start: 20150727
  11. RABEPRAZOLE SODIUM. [Concomitant]
     Active Substance: RABEPRAZOLE SODIUM
     Indication: CHRONIC GASTRITIS
     Route: 048
     Dates: start: 20150129
  12. ACETAMINOPHEN. [Concomitant]
     Active Substance: ACETAMINOPHEN
     Indication: HEADACHE
     Route: 048
     Dates: start: 20150514
  13. POLAPREZINC [Concomitant]
     Active Substance: POLAPREZINC
     Indication: CHRONIC GASTRITIS
     Route: 048
     Dates: start: 20150630
  14. METOCLOPRAMIDE. [Concomitant]
     Active Substance: METOCLOPRAMIDE
     Indication: PROPHYLAXIS OF NAUSEA AND VOMITING
     Route: 048
     Dates: start: 20150625
  15. ALLYLISOPROPYLACETYLUREA [Concomitant]
     Active Substance: APRONALIDE
     Indication: PRODUCT USED FOR UNKNOWN INDICATION
     Route: 048
     Dates: start: 20150514
  16. PHYSIO 35 [Concomitant]
     Active Substance: ELECTROLYTES NOS
     Indication: SUBILEUS
     Route: 042
     Dates: start: 20150730, end: 20150803
  17. LOXOPROFEN SODIUM [Concomitant]
     Active Substance: LOXOPROFEN SODIUM
     Indication: CANCER PAIN
     Route: 048
     Dates: start: 20150116
  18. LACTEC D                           /00895301/ [Concomitant]
     Indication: SUBILEUS
     Route: 042
     Dates: start: 20150803, end: 20150803
  19. DOCETAXEL. [Suspect]
     Active Substance: DOCETAXEL
     Indication: NON-SMALL CELL LUNG CANCER
     Route: 042
     Dates: start: 20150728, end: 20150816
  20. OXYCODONE HYDROCHLORIDE. [Concomitant]
     Active Substance: OXYCODONE HYDROCHLORIDE
     Indication: CANCER PAIN
     Route: 048
     Dates: start: 20150123
  21. CARBOPLATIN. [Suspect]
     Active Substance: CARBOPLATIN
     Indication: CHEMOTHERAPY
     Dates: start: 20150129, end: 20150402
  22. BEVACIZUMAB [Suspect]
     Active Substance: BEVACIZUMAB
     Indication: CHEMOTHERAPY
     Route: 042
     Dates: start: 20150129, end: 20150625
  23. LAFUTIDINE [Concomitant]
     Active Substance: LAFUTIDINE
     Indication: CHRONIC GASTRITIS
     Route: 048
     Dates: start: 20150129, end: 20150731
  24. CEFCAPENE PIVOXIL HYDROCHLORIDE [Concomitant]
     Active Substance: CEFCAPENE PIVOXIL HYDROCHLORIDE
     Indication: INFECTION PROPHYLAXIS
     Route: 048
     Dates: start: 20150630, end: 20150703

REACTIONS (4)
  - Intestinal perforation [Not Recovered/Not Resolved]
  - Disease progression [Fatal]
  - Peritonitis [Recovered/Resolved]
  - Ileus paralytic [Recovered/Resolved]

NARRATIVE: CASE EVENT DATE: 20150816
